FAERS Safety Report 15425458 (Version 5)
Quarter: 2022Q3

REPORT INFORMATION
  Report Type: Spontaneous
  Country: US (occurrence: US)
  Receive Date: 20180925
  Receipt Date: 20220906
  Transmission Date: 20221027
  Serious: No
  Sender: FDA-Public Use
  Company Number: US-PFIZER INC-2018376458

PATIENT
  Age: 79 Year
  Sex: Male
  Weight: 64.399 kg

DRUGS (7)
  1. SUTENT [Suspect]
     Active Substance: SUNITINIB MALATE
     Indication: Renal cell carcinoma
     Dosage: 50 MG, 1X/DAY
     Dates: start: 20180913
  2. SUTENT [Suspect]
     Active Substance: SUNITINIB MALATE
     Dosage: 1 CAPSULE DAILY X 4 WEEK ON FOLLOW BY 2 WEEK OFF QTY:28
  3. SUTENT [Suspect]
     Active Substance: SUNITINIB MALATE
     Dosage: 37. 5 MG ONE CAPSULE BY MOUTH DAILY
     Route: 048
     Dates: start: 201809, end: 20191230
  4. SUTENT [Suspect]
     Active Substance: SUNITINIB MALATE
     Dosage: TAKE WHOLE WITH WATER ON DAYS 1-14 OF EACH 21-DAY CYCLE. TOTAL DAILY DOSE IS 50 MG
     Route: 048
  5. TYLENOL [Concomitant]
     Active Substance: ACETAMINOPHEN
     Dosage: UNK, AS NEEDED
  6. FINASTERIDE [Concomitant]
     Active Substance: FINASTERIDE
     Indication: Prostatic disorder
     Dosage: 5 MG
  7. ATORVASTATIN CALCIUM [Concomitant]
     Active Substance: ATORVASTATIN CALCIUM
     Indication: Blood cholesterol abnormal
     Dosage: 20 MG

REACTIONS (3)
  - Hypersensitivity [Recovered/Resolved]
  - Sneezing [Recovered/Resolved]
  - Neoplasm progression [Unknown]

NARRATIVE: CASE EVENT DATE: 20191230
